FAERS Safety Report 9880662 (Version 1)
Quarter: 2014Q1

REPORT INFORMATION
  Report Type: Spontaneous
  Country: US (occurrence: US)
  Receive Date: 20140207
  Receipt Date: 20140207
  Transmission Date: 20141002
  Serious: Yes (Hospitalization, Other)
  Sender: FDA-Public Use
  Company Number: US-SA-2014SA014523

PATIENT
  Age: 50 Year
  Sex: Female

DRUGS (5)
  1. LANTUS SOLOSTAR [Suspect]
     Dosage: DOSE:12 UNIT(S)
     Route: 058
  2. LANTUS [Suspect]
     Route: 058
  3. NOVOLOG [Suspect]
     Route: 065
  4. HUMALOG [Suspect]
     Route: 065
  5. SOLOSTAR [Concomitant]

REACTIONS (2)
  - Staphylococcal infection [Unknown]
  - Disease progression [Unknown]
